FAERS Safety Report 9164146 (Version 1)
Quarter: 2013Q1

REPORT INFORMATION
  Report Type: Spontaneous
  Country: SE (occurrence: SE)
  Receive Date: 20130315
  Receipt Date: 20130315
  Transmission Date: 20140127
  Serious: Yes (Life-Threatening, Hospitalization)
  Sender: FDA-Public Use
  Company Number: SE-009507513-1303SWE006452

PATIENT
  Age: 28 Year
  Sex: Female

DRUGS (6)
  1. TRILAFON DECANOATE [Suspect]
     Dosage: STRENGTH: 108 MG/ML
  2. ABILIFY [Suspect]
  3. RISPERDAL [Suspect]
  4. PARGITAN [Suspect]
  5. ZYPREXA [Suspect]
  6. RHODIOLA [Concomitant]

REACTIONS (11)
  - Depression [Unknown]
  - Dysphoria [Unknown]
  - Hallucination [Unknown]
  - Amnesia [Unknown]
  - Personality change [Unknown]
  - Bradyphrenia [Unknown]
  - Speech disorder developmental [Unknown]
  - Fatigue [Unknown]
  - Muscle twitching [Unknown]
  - Asthenia [Unknown]
  - Hypoaesthesia [Unknown]
